FAERS Safety Report 8815733 (Version 2)
Quarter: 2014Q2

REPORT INFORMATION
  Report Type: Report from Study
  Country: US (occurrence: US)
  Receive Date: 20120928
  Receipt Date: 20140404
  Transmission Date: 20141212
  Serious: Yes (Death)
  Sender: FDA-Public Use
  Company Number: US-ROCHE-1136079

PATIENT
  Sex: Female

DRUGS (19)
  1. HERCEPTIN [Suspect]
     Indication: GASTRIC CANCER
     Route: 042
  2. HERCEPTIN [Suspect]
     Indication: GASTRIC CANCER
  3. HERCEPTIN [Suspect]
     Indication: GASTRIC CANCER
  4. XELODA [Suspect]
     Indication: GASTRIC CANCER
     Route: 065
  5. XELODA [Suspect]
     Indication: GASTRIC CANCER
  6. XELODA [Suspect]
     Indication: GASTRIC CANCER
  7. OXALIPLATIN [Concomitant]
  8. PHENERGAN [Concomitant]
  9. ATIVAN [Concomitant]
  10. BENADRYL (UNITED STATES) [Concomitant]
  11. DECADRON [Concomitant]
  12. LASIX [Concomitant]
  13. EPIRUBICIN [Concomitant]
  14. IRON SUCROSE [Concomitant]
  15. SOLU-MEDROL [Concomitant]
  16. PRBC^S [Concomitant]
  17. DEXTROSE [Concomitant]
  18. ALBUMIN [Concomitant]
  19. ZOFRAN [Concomitant]

REACTIONS (1)
  - Death [Fatal]
